FAERS Safety Report 9738610 (Version 1)
Quarter: 2013Q4

REPORT INFORMATION
  Report Type: Report from Study
  Country: PL (occurrence: PL)
  Receive Date: 20131209
  Receipt Date: 20131209
  Transmission Date: 20140711
  Serious: Yes (Hospitalization, Other)
  Sender: FDA-Public Use
  Company Number: PL-ROCHE-1310107

PATIENT
  Age: 60 Year
  Sex: Male

DRUGS (39)
  1. RITUXIMAB [Suspect]
     Indication: MANTLE CELL LYMPHOMA
     Route: 065
  2. RITUXIMAB [Suspect]
     Route: 042
     Dates: start: 20101011
  3. RITUXIMAB [Suspect]
     Route: 042
     Dates: start: 20120712
  4. DEXTROMETHORPHAN [Concomitant]
     Route: 065
     Dates: start: 20100311
  5. ARA-C [Concomitant]
     Route: 065
     Dates: start: 20100311
  6. METHOTREXATE [Concomitant]
     Route: 065
     Dates: start: 20100311
  7. VINCRISTINE SULFATE [Concomitant]
     Route: 042
     Dates: start: 20100323
  8. VINCRISTINE SULFATE [Concomitant]
     Dosage: BOLUS
     Route: 042
     Dates: start: 20120712
  9. ENDOXAN [Concomitant]
     Route: 042
     Dates: start: 20100323
  10. ENDOXAN [Concomitant]
     Route: 042
  11. ENDOXAN [Concomitant]
     Route: 042
     Dates: start: 20120712
  12. ENCORTON [Concomitant]
     Route: 048
  13. ENCORTON [Concomitant]
     Route: 048
     Dates: start: 20120712
  14. MESNA [Concomitant]
  15. ZINACEF [Concomitant]
  16. CIPRINOL (POLAND) [Concomitant]
  17. VFEND [Concomitant]
  18. OPACORDEN [Concomitant]
  19. GASEC [Concomitant]
     Route: 065
  20. GASEC [Concomitant]
     Route: 065
     Dates: start: 20101014
  21. METOCLOPRAMIDE [Concomitant]
  22. PREDUCTAL MR [Concomitant]
  23. LOPERAMIDE [Concomitant]
  24. FLUDARA [Concomitant]
     Route: 042
  25. MITOXANTRONE [Concomitant]
     Route: 042
     Dates: start: 20101011
  26. ZOFRAN [Concomitant]
  27. PERFALGAN [Concomitant]
  28. CLEMASTIN [Concomitant]
  29. DEXAVEN (POLAND) [Concomitant]
  30. BETALOC ZOK [Concomitant]
     Route: 065
  31. GASEC [Concomitant]
     Dosage: 1X1
     Route: 065
     Dates: start: 20101014
  32. MILURIT [Concomitant]
     Route: 065
     Dates: start: 20101014
  33. NO SPA [Concomitant]
  34. RUTINOSCORBIN [Concomitant]
  35. NEULASTA [Concomitant]
     Dosage: 1 AMPOULE
     Route: 058
     Dates: start: 20101014
  36. RUTINACEA [Concomitant]
     Dosage: 3X2 TABLET
     Route: 065
     Dates: start: 20101014
  37. BACTRIM FORTE [Concomitant]
     Dosage: 2X1 TAB
     Route: 065
     Dates: start: 20101014
  38. HEVIRAN [Concomitant]
     Route: 065
     Dates: start: 20101014
  39. ADRIAMYCIN [Concomitant]
     Route: 042
     Dates: start: 20120712

REACTIONS (20)
  - Dyspnoea [Unknown]
  - Agranulocytosis [Unknown]
  - Cachexia [Unknown]
  - Pleural effusion [Unknown]
  - Anaemia [Unknown]
  - Lymphadenopathy [Unknown]
  - Disease recurrence [Unknown]
  - Eye disorder [Unknown]
  - Leukocytosis [Unknown]
  - Pyrexia [Unknown]
  - General physical health deterioration [Unknown]
  - Blood pressure decreased [Unknown]
  - Oedema peripheral [Unknown]
  - Inflammation [Unknown]
  - Hypoalbuminaemia [Unknown]
  - Asthenia [Unknown]
  - Exophthalmos [Unknown]
  - Eyelid oedema [Unknown]
  - Ventricular arrhythmia [Unknown]
  - Dysphagia [Unknown]
